FAERS Safety Report 19655504 (Version 1)
Quarter: 2021Q3

REPORT INFORMATION
  Report Type: Spontaneous
  Country: CA (occurrence: CA)
  Receive Date: 20210804
  Receipt Date: 20210804
  Transmission Date: 20211014
  Serious: Yes (Other)
  Sender: FDA-Public Use
  Company Number: CA-PFIZER INC-202100951364

PATIENT
  Sex: Female

DRUGS (6)
  1. IBRANCE [Suspect]
     Active Substance: PALBOCICLIB
     Indication: OVARIAN CANCER METASTATIC
     Dosage: UNK
     Route: 048
  2. FULVESTRANT. [Concomitant]
     Active Substance: FULVESTRANT
     Indication: OVARIAN CANCER METASTATIC
     Route: 030
  3. MEGACE [Suspect]
     Active Substance: MEGESTROL ACETATE
     Dosage: UNK
     Route: 065
  4. LUPRON DEPOT [Suspect]
     Active Substance: LEUPROLIDE ACETATE
     Indication: OVARIAN CANCER METASTATIC
     Dosage: UNK
     Route: 030
  5. LETROZOLE. [Suspect]
     Active Substance: LETROZOLE
     Dosage: UNK
     Route: 065
  6. TAMOXIFEN [Suspect]
     Active Substance: TAMOXIFEN
     Dosage: UNK
     Route: 065

REACTIONS (6)
  - Breast cancer [Unknown]
  - Off label use [Unknown]
  - Second primary malignancy [Unknown]
  - Drug intolerance [Unknown]
  - Oestrogen receptor assay positive [Unknown]
  - Neoplasm progression [Unknown]
